FAERS Safety Report 14673581 (Version 1)
Quarter: 2018Q1

REPORT INFORMATION
  Report Type: Spontaneous
  Country: SE (occurrence: SE)
  Receive Date: 20180323
  Receipt Date: 20180323
  Transmission Date: 20180509
  Serious: Yes (Hospitalization)
  Sender: FDA-Public Use
  Company Number: SE-TEVA-2018-SE-870255

PATIENT
  Age: 84 Year
  Sex: Male

DRUGS (6)
  1. GABAPENTIN. [Suspect]
     Active Substance: GABAPENTIN
     Dates: end: 20171101
  2. CITALOPRAM [Suspect]
     Active Substance: CITALOPRAM HYDROBROMIDE
     Dates: end: 20171101
  3. MIRTAZAPINE. [Suspect]
     Active Substance: MIRTAZAPINE
     Dates: end: 20171101
  4. SIFROL [Suspect]
     Active Substance: PRAMIPEXOLE
     Dosage: DOSERING: ^1-2 VESP^
     Dates: end: 20171101
  5. INDERAL [Suspect]
     Active Substance: PROPRANOLOL HYDROCHLORIDE
     Dates: end: 20171101
  6. IMOVANE [Suspect]
     Active Substance: ZOPICLONE
     Dates: end: 20171101

REACTIONS (1)
  - Hallucination, visual [Recovered/Resolved]

NARRATIVE: CASE EVENT DATE: 20171106
